FAERS Safety Report 4269874-1 (Version None)
Quarter: 2004Q1

REPORT INFORMATION
  Report Type: 
  Country: None (occurrence: None)
  Receive Date: 20040114
  Receipt Date: 20040109
  Transmission Date: 20041129
  Serious: Yes (Death)
  Sender: FDA-Public Use
  Company Number: 200410061EU

PATIENT
  Age: 72 Year
  Sex: Male

DRUGS (7)
  1. DOCETAXEL [Suspect]
     Indication: LUNG NEOPLASM MALIGNANT
     Route: 042
     Dates: start: 20031210
  2. CARBOPLATIN [Suspect]
     Indication: LUNG NEOPLASM MALIGNANT
     Route: 042
     Dates: start: 20031210
  3. UNKNOWN DRUG [Suspect]
     Indication: LUNG NEOPLASM MALIGNANT
     Route: 048
     Dates: start: 20031210
  4. SINTROM [Concomitant]
  5. SOTALOL HCL [Concomitant]
  6. IBUPROFEN [Concomitant]
  7. LIPITOR [Concomitant]

REACTIONS (1)
  - PULMONARY HAEMORRHAGE [None]
